FAERS Safety Report 16420508 (Version 3)
Quarter: 2019Q2

REPORT INFORMATION
  Report Type: Spontaneous
  Country: US (occurrence: US)
  Receive Date: 20190612
  Receipt Date: 20190619
  Transmission Date: 20190711
  Serious: No
  Sender: FDA-Public Use
  Company Number: US-PFIZER INC-2019247434

PATIENT
  Age: 46 Year
  Sex: Female
  Weight: 79.38 kg

DRUGS (2)
  1. VENLAFAXINE HCL [Suspect]
     Active Substance: VENLAFAXINE HYDROCHLORIDE
     Indication: DEPRESSION
  2. VENLAFAXINE HCL [Suspect]
     Active Substance: VENLAFAXINE HYDROCHLORIDE
     Indication: OBSESSIVE-COMPULSIVE DISORDER
     Dosage: 150 MG, 1X/DAY (QTY 90/DAYS SUPPLY 90)
     Route: 048

REACTIONS (6)
  - Drug ineffective [Unknown]
  - Nervousness [Recovered/Resolved]
  - Abdominal discomfort [Recovered/Resolved]
  - Restless legs syndrome [Recovered/Resolved]
  - Limb discomfort [Recovered/Resolved]
  - Feeling abnormal [Unknown]
